FAERS Safety Report 12630795 (Version 1)
Quarter: 2016Q3

REPORT INFORMATION
  Report Type: Spontaneous
  Country: US (occurrence: US)
  Receive Date: 20160808
  Receipt Date: 20160808
  Transmission Date: 20161109
  Serious: No
  Sender: FDA-Public Use
  Company Number: US-PFIZER INC-2016361965

PATIENT
  Age: 40 Year
  Sex: Female

DRUGS (2)
  1. NEURONTIN [Suspect]
     Active Substance: GABAPENTIN
     Indication: MYOFASCIAL PAIN SYNDROME
     Dosage: UNK
     Dates: start: 2014
  2. NEURONTIN [Suspect]
     Active Substance: GABAPENTIN
     Indication: TEMPOROMANDIBULAR JOINT SYNDROME

REACTIONS (1)
  - Drug ineffective for unapproved indication [Unknown]

NARRATIVE: CASE EVENT DATE: 2014
